FAERS Safety Report 12502744 (Version 1)
Quarter: 2016Q2

REPORT INFORMATION
  Report Type: Report from Study
  Country: KR (occurrence: KR)
  Receive Date: 20160628
  Receipt Date: 20160628
  Transmission Date: 20160815
  Serious: Yes (Death)
  Sender: FDA-Public Use
  Company Number: KR-ROCHE-1780454

PATIENT

DRUGS (3)
  1. GANCICLOVIR. [Suspect]
     Active Substance: GANCICLOVIR
     Indication: CYTOMEGALOVIRUS CHORIORETINITIS
     Dosage: (2 MG/100 ML)
     Route: 050
  2. VALGANCICLOVIR. [Suspect]
     Active Substance: VALGANCICLOVIR
     Indication: CYTOMEGALOVIRUS CHORIORETINITIS
     Dosage: WAS PRESCRIBED FOR AT LEAST 1 WEEK AS THE PRIMARY SYSTEMIC THERAPY.
     Route: 050
  3. GANCICLOVIR. [Suspect]
     Active Substance: GANCICLOVIR
     Route: 050

REACTIONS (1)
  - Pneumonia bacterial [Fatal]
